FAERS Safety Report 5323863-4 (Version None)
Quarter: 2007Q2

REPORT INFORMATION
  Report Type: 
  Country: None (occurrence: None)
  Receive Date: 20070514
  Receipt Date: 20070512
  Transmission Date: 20071010
  Serious: Yes (Hospitalization)
  Sender: FDA-Public Use
  Company Number: ES-GENENTECH-238697

PATIENT
  Sex: Male

DRUGS (1)
  1. RAPTIVA [Suspect]
     Indication: ERYTHRODERMIC PSORIASIS
     Dosage: 1.14 MG/KG, 1/WEEK
     Route: 058
     Dates: start: 20060401

REACTIONS (1)
  - CORNEAL DISORDER [None]
